FAERS Safety Report 6158934-6 (Version None)
Quarter: 2009Q2

REPORT INFORMATION
  Report Type: 
  Country: None (occurrence: None)
  Receive Date: 20090417
  Receipt Date: 20090414
  Transmission Date: 20091009
  Serious: Yes (Hospitalization, Disabling)
  Sender: FDA-Public Use
  Company Number: US-MERCK-0904USA02075

PATIENT
  Sex: Female

DRUGS (2)
  1. EMEND [Suspect]
     Indication: PROPHYLACTIC CHEMOTHERAPY
     Route: 048
  2. IFOSFAMIDE [Suspect]
     Indication: NEOPLASM MALIGNANT
     Route: 065

REACTIONS (2)
  - DRUG INTERACTION [None]
  - HALLUCINATION [None]
